FAERS Safety Report 21303231 (Version 1)
Quarter: 2022Q3

REPORT INFORMATION
  Report Type: Spontaneous
  Country: US (occurrence: None)
  Receive Date: 20220907
  Receipt Date: 20220907
  Transmission Date: 20221026
  Serious: Yes (Other)
  Sender: FDA-Public Use
  Company Number: 2022A303556

PATIENT

DRUGS (1)
  1. SYMBICORT [Suspect]
     Active Substance: BUDESONIDE\FORMOTEROL FUMARATE DIHYDRATE
     Dosage: 160 MCG/4.5 MCG
     Route: 055

REACTIONS (10)
  - Neoplasm malignant [Unknown]
  - Feeling abnormal [Unknown]
  - Immune system disorder [Unknown]
  - Haemorrhage [Unknown]
  - Memory impairment [Unknown]
  - Tinnitus [Unknown]
  - Lung disorder [Unknown]
  - Pain in extremity [Unknown]
  - Osteoporosis [Unknown]
  - Haemorrhage [Unknown]
